FAERS Safety Report 13925650 (Version 1)
Quarter: 2017Q3

REPORT INFORMATION
  Report Type: Spontaneous
  Country: US (occurrence: US)
  Receive Date: 20170831
  Receipt Date: 20170831
  Transmission Date: 20171127
  Serious: Yes (Other)
  Sender: FDA-Public Use
  Company Number: US-ALEXION-A201709433

PATIENT
  Sex: Male

DRUGS (1)
  1. SOLIRIS [Suspect]
     Active Substance: ECULIZUMAB
     Indication: PAROXYSMAL NOCTURNAL HAEMOGLOBINURIA
     Dosage: UNK
     Route: 042
     Dates: start: 20070927

REACTIONS (5)
  - Blood lactate dehydrogenase increased [Unknown]
  - Asthenia [Unknown]
  - Inappropriate schedule of drug administration [Recovered/Resolved]
  - Haemolysis [Not Recovered/Not Resolved]
  - Joint swelling [Unknown]
